FAERS Safety Report 23289070 (Version 1)
Quarter: 2023Q4

REPORT INFORMATION
  Report Type: Spontaneous
  Country: US (occurrence: None)
  Receive Date: 20231211
  Receipt Date: 20231211
  Transmission Date: 20240109
  Serious: Yes (Other)
  Sender: FDA-Public Use
  Company Number: None

PATIENT
  Age: 45 Year
  Sex: Female
  Weight: 75.8 kg

DRUGS (1)
  1. ORENCIA [Suspect]
     Active Substance: ABATACEPT
     Indication: Polyarthritis
     Dosage: FREQUENCY : MONTHLY;?
     Route: 042
     Dates: start: 20230712, end: 20231115

REACTIONS (5)
  - Rash [None]
  - Tongue disorder [None]
  - Heart rate increased [None]
  - Chills [None]
  - Drug ineffective [None]

NARRATIVE: CASE EVENT DATE: 20231115
